FAERS Safety Report 6707817-9 (Version None)
Quarter: 2010Q2

REPORT INFORMATION
  Report Type: 
  Country: None (occurrence: None)
  Receive Date: 20100503
  Receipt Date: 20090827
  Transmission Date: 20101027
  Serious: No
  Sender: FDA-Public Use
  Company Number: US-ASTRAZENECA-2009SE10271

PATIENT
  Age: 85 Year
  Sex: Female

DRUGS (5)
  1. NEXIUM [Suspect]
     Indication: DYSPEPSIA
     Route: 048
     Dates: start: 20080801, end: 20081001
  2. NEXIUM [Suspect]
     Route: 048
     Dates: start: 20081001, end: 20090822
  3. MULTI-VITAMINS [Concomitant]
  4. ZANTAC [Concomitant]
  5. NORVASC [Concomitant]

REACTIONS (3)
  - LIP SWELLING [None]
  - MACULAR DEGENERATION [None]
  - OEDEMA MOUTH [None]
